FAERS Safety Report 12440203 (Version 1)
Quarter: 2016Q2

REPORT INFORMATION
  Report Type: Spontaneous
  Country: US (occurrence: US)
  Receive Date: 20160606
  Receipt Date: 20160606
  Transmission Date: 20160815
  Serious: No
  Sender: FDA-Public Use
  Company Number: US-AMGEN-USASP2015099699

PATIENT
  Age: 55 Year
  Sex: Female

DRUGS (4)
  1. HYDROXYCHLOROQUINE [Concomitant]
     Active Substance: HYDROXYCHLOROQUINE
     Indication: SYSTEMIC LUPUS ERYTHEMATOSUS
     Dosage: 200 MG, DAILY
     Dates: start: 2008
  2. PROCRIT [Suspect]
     Active Substance: ERYTHROPOIETIN
     Indication: SYSTEMIC LUPUS ERYTHEMATOSUS
     Dosage: 20000 UNK, EVERY 15 DAYS
     Route: 065
     Dates: start: 2015
  3. HECTOROL [Concomitant]
     Active Substance: DOXERCALCIFEROL
     Indication: RENAL DISORDER
     Dosage: 5 MG, DAILY
     Dates: start: 2008
  4. IRBESARTAN. [Concomitant]
     Active Substance: IRBESARTAN
     Indication: HYPERTENSION
     Dosage: 150 MG, DAILY
     Dates: start: 2008

REACTIONS (2)
  - Underdose [Unknown]
  - Off label use [Not Recovered/Not Resolved]

NARRATIVE: CASE EVENT DATE: 2015
